FAERS Safety Report 4496336-9 (Version None)
Quarter: 2004Q4

REPORT INFORMATION
  Report Type: 
  Country: None (occurrence: None)
  Receive Date: 20041109
  Receipt Date: 20041006
  Transmission Date: 20050328
  Serious: Yes (Hospitalization)
  Sender: FDA-Public Use
  Company Number: CA-ABBOTT-04P-028-0276933-00

PATIENT
  Sex: Female

DRUGS (13)
  1. KALETRA [Suspect]
     Indication: HIV INFECTION
     Dates: start: 20040123, end: 20040901
  2. SALMON OIL [Suspect]
     Indication: BLOOD TRIGLYCERIDES INCREASED
     Route: 048
     Dates: start: 20040525, end: 20040901
  3. OLANZAPINE [Concomitant]
     Indication: DRUG USE FOR UNKNOWN INDICATION
     Dates: start: 20030101, end: 20040901
  4. LORAZEPAM [Concomitant]
     Indication: DRUG USE FOR UNKNOWN INDICATION
     Dates: start: 20030101, end: 20040901
  5. CITALOPRAM HYDROBROMIDE [Concomitant]
     Indication: DRUG USE FOR UNKNOWN INDICATION
     Dates: start: 20030101, end: 20040901
  6. LAMIVUDINE [Concomitant]
     Indication: DRUG USE FOR UNKNOWN INDICATION
     Dates: start: 20030725, end: 20031014
  7. LAMIVUDINE [Concomitant]
     Dates: start: 20040123, end: 20040901
  8. NEVIRAPINE [Concomitant]
     Indication: DRUG USE FOR UNKNOWN INDICATION
     Dates: start: 20030725, end: 20031014
  9. NEVIRAPINE [Concomitant]
     Dates: start: 20040123, end: 20040901
  10. ABACAVIR SULFATE [Concomitant]
     Indication: DRUG USE FOR UNKNOWN INDICATION
     Dates: start: 20030818, end: 20031014
  11. ABACAVIR SULFATE [Concomitant]
     Dates: start: 20040123, end: 20040206
  12. ABACAVIR SULFATE [Concomitant]
     Dates: start: 20040302, end: 20040311
  13. STAVUDINE [Concomitant]
     Indication: DRUG USE FOR UNKNOWN INDICATION
     Route: 048
     Dates: start: 20040316, end: 20040901

REACTIONS (1)
  - ACUTE PSYCHOSIS [None]
